FAERS Safety Report 17124802 (Version 2)
Quarter: 2020Q1

REPORT INFORMATION
  Report Type: Report from Study
  Country: US (occurrence: US)
  Receive Date: 20191206
  Receipt Date: 20200102
  Transmission Date: 20200409
  Serious: Yes (Hospitalization)
  Sender: FDA-Public Use
  Company Number: US-ALNYLAM PHARMACEUTICALS, INC.-ALN-2019-000935

PATIENT
  Sex: Female

DRUGS (1)
  1. ONPATTRO [Suspect]
     Active Substance: PATISIRAN SODIUM
     Indication: HEREDITARY NEUROPATHIC AMYLOIDOSIS
     Dosage: UNK
     Route: 042

REACTIONS (9)
  - Pharyngitis streptococcal [Unknown]
  - Fall [Unknown]
  - Blood glucose decreased [Unknown]
  - Pneumonia [Unknown]
  - Diarrhoea [Unknown]
  - Vomiting [Unknown]
  - Dizziness [Unknown]
  - Mass [Unknown]
  - Infusion related reaction [Unknown]
